FAERS Safety Report 25065005 (Version 1)
Quarter: 2025Q1

REPORT INFORMATION
  Report Type: Spontaneous
  Country: US (occurrence: US)
  Receive Date: 20250311
  Receipt Date: 20250311
  Transmission Date: 20250408
  Serious: Yes (Other)
  Sender: MERCK SHARP & DOHME LLC
  Company Number: US-009507513-2259554

PATIENT
  Age: 64 Year
  Sex: Male
  Weight: 96 kg

DRUGS (2)
  1. KEYTRUDA [Suspect]
     Active Substance: PEMBROLIZUMAB
     Route: 065
  2. XGEVA [Suspect]
     Active Substance: DENOSUMAB
     Route: 058

REACTIONS (3)
  - Renal cancer metastatic [Unknown]
  - Shoulder operation [Recovering/Resolving]
  - Pleural disorder [Unknown]
